FAERS Safety Report 14695680 (Version 1)
Quarter: 2018Q1

REPORT INFORMATION
  Report Type: Spontaneous
  Country: US (occurrence: US)
  Receive Date: 20180328
  Receipt Date: 20180328
  Transmission Date: 20180509
  Serious: Yes (Other)
  Sender: FDA-Public Use
  Company Number: None

PATIENT
  Age: 27 Year
  Sex: Female
  Weight: 61.65 kg

DRUGS (2)
  1. ZUBSOLV 8.6-2.1 MG SUBLINGUAL TABLETS [Concomitant]
     Route: 060
     Dates: start: 20161216, end: 20180301
  2. BUPRENORPHINE-NALOXONE SUBLINGUAL TABLETS [Suspect]
     Active Substance: BUPRENORPHINE HYDROCHLORIDE\NALOXONE HYDROCHLORIDE
     Indication: DRUG DEPENDENCE
     Route: 060
     Dates: start: 20180301, end: 20180328

REACTIONS (2)
  - Nausea [None]
  - Retching [None]

NARRATIVE: CASE EVENT DATE: 20180326
